FAERS Safety Report 10048871 (Version 1)
Quarter: 2014Q1

REPORT INFORMATION
  Report Type: Spontaneous
  Country: US (occurrence: US)
  Receive Date: 20140331
  Receipt Date: 20140331
  Transmission Date: 20141002
  Serious: No
  Sender: FDA-Public Use
  Company Number: US-PFIZER INC-2014087787

PATIENT
  Age: 41 Year
  Sex: Female
  Weight: 68.93 kg

DRUGS (1)
  1. EFFEXOR XR [Suspect]
     Indication: DEPRESSION
     Dosage: 112.5 MG (3 CAPSULES OF 37.5MG TOGETHER), 1X/DAY
     Route: 048

REACTIONS (5)
  - Influenza [Unknown]
  - Asthenopia [Unknown]
  - Headache [Unknown]
  - Ocular hyperaemia [Unknown]
  - Nausea [Unknown]
